FAERS Safety Report 7674526-1 (Version None)
Quarter: 2011Q3

REPORT INFORMATION
  Report Type: 
  Country: None (occurrence: None)
  Receive Date: 20110810
  Receipt Date: 20110728
  Transmission Date: 20111222
  Serious: Yes (Other)
  Sender: FDA-Public Use
  Company Number: PHHY2011JP20324

PATIENT
  Sex: Female

DRUGS (11)
  1. ASPARA [Concomitant]
     Dosage: 200 MG, UNK
     Route: 048
  2. TASIGNA [Suspect]
     Dosage: 400 MG, QD
     Route: 048
     Dates: start: 20101019
  3. CANDESARTAN CILEXETIL [Concomitant]
     Dosage: 8 MG, UNK
     Route: 048
  4. BREDININ [Suspect]
     Dosage: 50 MG, DAILY
     Route: 048
     Dates: start: 20100826
  5. CARVEDILOL [Concomitant]
     Dosage: 2.5 MG, UNK
     Route: 048
     Dates: start: 20100810
  6. TASIGNA [Suspect]
     Indication: CHRONIC MYELOID LEUKAEMIA
     Dosage: 400 MG, QD
     Route: 048
     Dates: start: 20100713, end: 20100928
  7. MOBIC [Concomitant]
     Dosage: 10 MG, UNK
     Route: 048
  8. BREDININ [Suspect]
     Dosage: 150 MG, QD
     Route: 048
  9. ALFAROL [Concomitant]
     Dosage: 0.5 UG, UNK
     Route: 048
  10. PREDNISOLONE [Concomitant]
     Dosage: 4 MG, QD
     Route: 048
  11. ADALAT [Concomitant]
     Dosage: 60 MG, UNK
     Route: 048

REACTIONS (2)
  - HYPERURICAEMIA [None]
  - PANCREATIC ENZYMES INCREASED [None]
